FAERS Safety Report 22608095 (Version 6)
Quarter: 2024Q1

REPORT INFORMATION
  Report Type: Other
  Country: CA (occurrence: None)
  Receive Date: 20230616
  Receipt Date: 20240312
  Transmission Date: 20240410
  Serious: Yes (Hospitalization, Other)
  Sender: FDA-Public Use
  Company Number: CA-ROCHE-3332883

PATIENT
  Sex: Female
  Weight: 50 kg

DRUGS (9)
  1. ACTEMRA [Suspect]
     Active Substance: TOCILIZUMAB
     Indication: Rheumatoid arthritis
     Route: 042
     Dates: start: 20110815
  2. BENADRYL [Concomitant]
     Active Substance: DIPHENHYDRAMINE HYDROCHLORIDE
  3. BRICANYL [Concomitant]
     Active Substance: TERBUTALINE SULFATE
  4. CELEBREX [Concomitant]
     Active Substance: CELECOXIB
  5. CLINDAMYCIN [Concomitant]
     Active Substance: CLINDAMYCIN
  6. NASONEX [Concomitant]
     Active Substance: MOMETASONE FUROATE
  7. PREDNISONE [Concomitant]
     Active Substance: PREDNISONE
  8. PULMICORT TURBUHALER [Concomitant]
     Active Substance: BUDESONIDE
  9. ZOLOFT [Concomitant]
     Active Substance: SERTRALINE HYDROCHLORIDE

REACTIONS (7)
  - Abscess neck [Unknown]
  - Hepatitis [Unknown]
  - Pharyngeal abscess [Recovered/Resolved]
  - COVID-19 [Unknown]
  - Hepatic enzyme increased [Recovered/Resolved]
  - Pain [Unknown]
  - Musculoskeletal stiffness [Unknown]

NARRATIVE: CASE EVENT DATE: 20230101
